FAERS Safety Report 7190165-3 (Version None)
Quarter: 2010Q4

REPORT INFORMATION
  Report Type: 
  Country: None (occurrence: None)
  Receive Date: 20101223
  Receipt Date: 20101027
  Transmission Date: 20110411
  Serious: No
  Sender: FDA-Public Use
  Company Number: US-MYLANLABS-2010S1019948

PATIENT
  Age: 48 Year
  Sex: Female
  Weight: 47.63 kg

DRUGS (1)
  1. CITALOPRAM HYDROBROMIDE [Suspect]
     Indication: MOOD SWINGS
     Route: 048
     Dates: start: 20101001

REACTIONS (2)
  - DRUG EFFECT DECREASED [None]
  - MOOD SWINGS [None]
